FAERS Safety Report 5045253-4 (Version None)
Quarter: 2006Q3

REPORT INFORMATION
  Report Type: 
  Country: None (occurrence: None)
  Receive Date: 20060705
  Receipt Date: 20060612
  Transmission Date: 20061208
  Serious: Yes (Hospitalization, Other)
  Sender: FDA-Public Use
  Company Number: US200603000449

PATIENT
  Age: 87 Year
  Sex: Female

DRUGS (6)
  1. FORTEO [Suspect]
     Indication: OSTEOPOROSIS
     Dosage: 20 UG, DAILY (1/D)
     Dates: start: 20050127, end: 20060130
  2. DURAGESIC-100 [Concomitant]
  3. NITROGLYCERIN                    (NITROGLYCERIN UNKNOWN FORMULATION) U [Concomitant]
  4. MYCOLOG          (GRAMICIDIN, NEOMYCIN SULFATE, NYSTATIN, TRIAMCINOLON [Concomitant]
  5. BLOOD TRANSFUSION, AUXILIARY PRODUCTS [Concomitant]
  6. RED BLOOD CELLS [Concomitant]

REACTIONS (15)
  - ABDOMINAL DISTENSION [None]
  - ANAEMIA [None]
  - ANGINA PECTORIS [None]
  - ASTHENIA [None]
  - ATRIAL FIBRILLATION [None]
  - COMPRESSION FRACTURE [None]
  - GASTROINTESTINAL HAEMORRHAGE [None]
  - HAEMORRHAGE [None]
  - INCORRECT ROUTE OF DRUG ADMINISTRATION [None]
  - INJECTION SITE HAEMATOMA [None]
  - MESENTERIC VEIN THROMBOSIS [None]
  - MOBILITY DECREASED [None]
  - OEDEMA PERIPHERAL [None]
  - SUPRAVENTRICULAR TACHYCARDIA [None]
  - TENDERNESS [None]
